FAERS Safety Report 5160525-0 (Version None)
Quarter: 2006Q4

REPORT INFORMATION
  Report Type: 
  Country: None (occurrence: None)
  Receive Date: 20061129
  Receipt Date: 20061121
  Transmission Date: 20070319
  Serious: Yes (Hospitalization)
  Sender: FDA-Public Use
  Company Number: US-ROXANE LABORATORIES, INC-2006-DE-06191GD

PATIENT
  Age: 72 Year
  Sex: Male

DRUGS (10)
  1. CALCIUM CARBONATE [Suspect]
     Route: 048
  2. CALCITRIOL [Suspect]
  3. FUROSEMIDE [Suspect]
  4. IBUPROFEN [Concomitant]
  5. ASPIRIN [Concomitant]
  6. LOSARTAN POSTASSIUM [Concomitant]
  7. AMIODARONE HCL [Concomitant]
  8. ISOSORBIDE MONONITRATE [Concomitant]
  9. DIGOXIN [Concomitant]
  10. SODIUM POLYSTERENE SULFONATE [Concomitant]

REACTIONS (1)
  - MILK-ALKALI SYNDROME [None]
